FAERS Safety Report 16153336 (Version 2)
Quarter: 2022Q1

REPORT INFORMATION
  Report Type: Other
  Country: GB (occurrence: None)
  Receive Date: 20190403
  Receipt Date: 20220324
  Transmission Date: 20220424
  Serious: Yes (Death, Other)
  Sender: FDA-Public Use
  Company Number: GB-ROCHE-2295354

PATIENT

DRUGS (15)
  1. RITUXIMAB [Suspect]
     Active Substance: RITUXIMAB
     Indication: Anti-neutrophil cytoplasmic antibody positive vasculitis
     Dosage: 2 X 1 G ON DAYS 0 AND 7 FOR GROUP 1 AND 2 X 1 G DOSES ON DAYS 0 AND 14 FOR GROUP 2
     Route: 065
  2. RITUXIMAB [Suspect]
     Active Substance: RITUXIMAB
     Indication: Glomerulonephritis rapidly progressive
  3. MYCOPHENOLATE MOFETIL [Suspect]
     Active Substance: MYCOPHENOLATE MOFETIL
     Indication: Anti-neutrophil cytoplasmic antibody positive vasculitis
     Route: 065
  4. MYCOPHENOLATE MOFETIL [Suspect]
     Active Substance: MYCOPHENOLATE MOFETIL
     Indication: Glomerulonephritis rapidly progressive
  5. CYCLOPHOSPHAMIDE [Suspect]
     Active Substance: CYCLOPHOSPHAMIDE
     Indication: Anti-neutrophil cytoplasmic antibody positive vasculitis
     Dosage: 6 X PULSES OF 500-750 MG ON WEEK 0, 2, 4, 6, 8 AND 10 FOR GROUP 1
     Route: 065
  6. CYCLOPHOSPHAMIDE [Suspect]
     Active Substance: CYCLOPHOSPHAMIDE
     Indication: Glomerulonephritis rapidly progressive
     Dosage: 6 PULSES 500 MG ON WEEK 0, 2, 4, 6, 8 AND 10 FOR GROUP 2
     Route: 065
  7. PREDNISOLONE [Suspect]
     Active Substance: PREDNISOLONE
     Indication: Anti-neutrophil cytoplasmic antibody positive vasculitis
     Dosage: ON DAYS 2-6 (MAX 30 MG)/DAY FOR GROUP 1
     Route: 048
  8. PREDNISOLONE [Suspect]
     Active Substance: PREDNISOLONE
     Indication: Glomerulonephritis rapidly progressive
     Dosage: 45-60 MG/DAY 1 WEEK FOR GROUP 2
     Route: 048
  9. METHYLPREDNISOLONE [Suspect]
     Active Substance: METHYLPREDNISOLONE
     Indication: Anti-neutrophil cytoplasmic antibody positive vasculitis
     Dosage: 2 X 250-500 MG ON DAYS 0 AND 7 FOR GROUP 1 AND 250 MG-1 G FOR GROUP 2
     Route: 042
  10. METHYLPREDNISOLONE [Suspect]
     Active Substance: METHYLPREDNISOLONE
     Indication: Glomerulonephritis rapidly progressive
  11. AZATHIOPRINE [Suspect]
     Active Substance: AZATHIOPRINE
     Indication: Anti-neutrophil cytoplasmic antibody positive vasculitis
     Dosage: 1-2 MG/KG/DAY
     Route: 065
  12. AZATHIOPRINE [Suspect]
     Active Substance: AZATHIOPRINE
     Indication: Glomerulonephritis rapidly progressive
  13. METHOTREXATE [Suspect]
     Active Substance: METHOTREXATE
     Indication: Anti-neutrophil cytoplasmic antibody positive vasculitis
     Route: 065
  14. METHOTREXATE [Suspect]
     Active Substance: METHOTREXATE
     Indication: Glomerulonephritis rapidly progressive
  15. SULFAMETHOXAZOLE\TRIMETHOPRIM [Concomitant]
     Active Substance: SULFAMETHOXAZOLE\TRIMETHOPRIM

REACTIONS (19)
  - Sudden cardiac death [Fatal]
  - Acute kidney injury [Unknown]
  - Liver injury [Unknown]
  - Neutropenia [Unknown]
  - Phaeochromocytoma [Unknown]
  - Pneumocystis jirovecii pneumonia [Unknown]
  - Lower respiratory tract infection bacterial [Unknown]
  - Sepsis [Unknown]
  - Lower respiratory tract infection fungal [Unknown]
  - Post procedural haemorrhage [Unknown]
  - Lower respiratory tract infection [Unknown]
  - Urinary tract infection [Unknown]
  - Gastrointestinal infection [Unknown]
  - Hypogammaglobulinaemia [Unknown]
  - Osteoporosis [Unknown]
  - Accelerated hypertension [Unknown]
  - Pneumonitis [Unknown]
  - Mental disorder [Unknown]
  - Cardiovascular disorder [Unknown]
